FAERS Safety Report 15266058 (Version 3)
Quarter: 2018Q3

REPORT INFORMATION
  Report Type: Report from Study
  Country: None (occurrence: NL)
  Receive Date: 20180810
  Receipt Date: 20180921
  Transmission Date: 20181010
  Serious: Yes (Death, Hospitalization, Other)
  Sender: FDA-Public Use
  Company Number: NL-ABBVIE-18K-114-2415464-00

PATIENT
  Age: 84 Year
  Sex: Male

DRUGS (2)
  1. DUODOPA [Suspect]
     Active Substance: CARBIDOPA\LEVODOPA
     Dosage: DOSE INCREASED
     Route: 050
  2. DUODOPA [Suspect]
     Active Substance: CARBIDOPA\LEVODOPA
     Indication: PARKINSON^S DISEASE
     Dosage: MORNING DOSE: 12.7  CONTINUOUS DOSE:  4.6     EXTRA DOSE:  3
     Route: 050
     Dates: start: 20170501

REACTIONS (7)
  - Fall [Recovered/Resolved]
  - Death [Fatal]
  - Coma [Recovered/Resolved]
  - Fall [Recovered/Resolved]
  - Wrong technique in product usage process [Unknown]
  - Device damage [Unknown]
  - Brain injury [Not Recovered/Not Resolved]

NARRATIVE: CASE EVENT DATE: 20180703
